FAERS Safety Report 9310936 (Version 1)
Quarter: 2013Q3

REPORT INFORMATION
  Report Type: Spontaneous
  Country: US (occurrence: None)
  Receive Date: 20130523
  Receipt Date: 20130523
  Transmission Date: 20140515
  Serious: Yes (Other)
  Sender: FDA-Public Use
  Company Number: None

PATIENT
  Age: 61 Year
  Sex: Female
  Weight: 52.62 kg

DRUGS (2)
  1. ESTROVENT [Suspect]
     Indication: MENOPAUSAL SYMPTOMS
     Route: 048
     Dates: start: 2012, end: 201303
  2. PREMARIN [Suspect]
     Indication: MENOPAUSAL SYMPTOMS
     Dosage: PRN, QOD
     Dates: start: 201301, end: 201303

REACTIONS (4)
  - Amnesia [None]
  - Asthenia [None]
  - Alcohol use [None]
  - Drug administration error [None]
